FAERS Safety Report 8585612 (Version 2)
Quarter: 2013Q2

REPORT INFORMATION
  Report Type: Spontaneous
  Country: US (occurrence: US)
  Receive Date: 20120530
  Receipt Date: 20130530
  Transmission Date: 20140414
  Serious: No
  Sender: FDA-Public Use
  Company Number: US-GLAXOSMITHKLINE-A0930673A

PATIENT
  Age: 61 Year
  Sex: Female
  Weight: 66.4 kg

DRUGS (9)
  1. FLOLAN [Suspect]
     Indication: PULMONARY ARTERIAL HYPERTENSION
     Dosage: 26NGKM CONTINUOUS
     Route: 042
     Dates: start: 20081210
  2. LETAIRIS [Suspect]
     Dosage: 10MG PER DAY
     Route: 048
  3. OXYGEN [Concomitant]
  4. REVATIO [Concomitant]
     Dosage: 20MG THREE TIMES PER DAY
  5. SPIRONOLACTONE [Concomitant]
     Dosage: 25MG PER DAY
  6. FUROSEMIDE [Concomitant]
     Dosage: 40MG PER DAY
  7. POTASSIUM CHLORIDE [Concomitant]
     Dosage: 20MEQ TWICE PER DAY
  8. OMEPRAZOLE [Concomitant]
     Dosage: 20MG TWICE PER DAY
  9. DIPHENHYDRAMINE [Concomitant]
     Dosage: 25MG THREE TIMES PER DAY

REACTIONS (4)
  - Eye pain [Unknown]
  - Ocular hyperaemia [Unknown]
  - Dyspnoea [Not Recovered/Not Resolved]
  - Fatigue [Not Recovered/Not Resolved]
